FAERS Safety Report 5713097-3 (Version None)
Quarter: 2008Q2

REPORT INFORMATION
  Report Type: 
  Country: None (occurrence: None)
  Receive Date: 20080422
  Receipt Date: 20080414
  Transmission Date: 20081010
  Serious: Yes (Other)
  Sender: FDA-Public Use
  Company Number: PHHY2008GB05664

PATIENT

DRUGS (3)
  1. FEMARA [Suspect]
  2. STRONTIUM CHLORIDE [Concomitant]
  3. CALCICHEW [Concomitant]

REACTIONS (2)
  - CATARACT [None]
  - VISUAL DISTURBANCE [None]
